FAERS Safety Report 11078511 (Version 1)
Quarter: 2015Q2

REPORT INFORMATION
  Report Type: Report from Study
  Country: JP (occurrence: None)
  Receive Date: 20150428
  Receipt Date: 20150428
  Transmission Date: 20150821
  Serious: Yes (Hospitalization)
  Sender: FDA-Public Use
  Company Number: 2015BPN00013

PATIENT
  Age: 28 Year
  Sex: Female
  Weight: 12.8 kg

DRUGS (9)
  1. SODIUM BENZOATE [Concomitant]
     Active Substance: SODIUM BENZOATE
  2. MONILAC (LACTULOSE) [Concomitant]
  3. AMHIBA (ACETAMINOPHEN) [Concomitant]
  4. ARGI-U (L-ARGININE HYDROCHLORIDE) [Concomitant]
  5. POTASSIUM CHLORIDE. [Concomitant]
     Active Substance: POTASSIUM CHLORIDE
  6. VEEN-D )ACETATED RINGER^S SOLUTION (WITH GLUCOSE) [Concomitant]
  7. SOLDEM 3AG (MAINTENANCE MEDIUM) [Concomitant]
  8. BUPHENYL GRANULES [Suspect]
     Active Substance: SODIUM PHENYLBUTYRATE
     Indication: ORNITHINE TRANSCARBAMOYLASE DEFICIENCY
     Route: 048
     Dates: start: 20130222, end: 20130223
  9. CEFOTAX (CEFOTAXIME SODIUM) [Concomitant]

REACTIONS (4)
  - Gastroenteritis [None]
  - Upper respiratory tract inflammation [None]
  - Herpangina [None]
  - Hyperammonaemia [None]

NARRATIVE: CASE EVENT DATE: 20131218
